FAERS Safety Report 7310949-8 (Version None)
Quarter: 2011Q1

REPORT INFORMATION
  Report Type: 
  Country: None (occurrence: None)
  Receive Date: 20110224
  Receipt Date: 20110214
  Transmission Date: 20110831
  Serious: Yes (Other)
  Sender: FDA-Public Use
  Company Number: US-BAYER-2011-015817

PATIENT
  Sex: Female

DRUGS (3)
  1. OCELLA [Suspect]
     Dosage: UNK
     Route: 048
     Dates: start: 20081001
  2. YAZ [Suspect]
     Dosage: UNK
     Route: 048
     Dates: start: 20081001
  3. YASMIN [Suspect]
     Dosage: UNK
     Route: 048
     Dates: start: 20081001

REACTIONS (4)
  - PAIN [None]
  - FEAR [None]
  - CEREBROVASCULAR ACCIDENT [None]
  - ANXIETY [None]
